FAERS Safety Report 7299766-5 (Version None)
Quarter: 2011Q1

REPORT INFORMATION
  Report Type: 
  Country: None (occurrence: None)
  Receive Date: 20110208
  Receipt Date: 20110131
  Transmission Date: 20110831
  Serious: Yes (Hospitalization)
  Sender: FDA-Public Use
  Company Number: 025599

PATIENT
  Sex: Male
  Weight: 73 kg

DRUGS (1)
  1. CERTOLIZUMAB PEGOL (CERTOLIZUMAB PEGOL) [Suspect]
     Indication: RHEUMATOID ARTHRITIS
     Dosage: 200 MG NO OF DOSES RECEIVED: 10, SUBCUTANEOUS
     Route: 058
     Dates: start: 20100727, end: 20101101

REACTIONS (4)
  - CLAVICLE FRACTURE [None]
  - GRAND MAL CONVULSION [None]
  - HAEMORRHAGE [None]
  - FALL [None]
